FAERS Safety Report 9477439 (Version 4)
Quarter: 2014Q1

REPORT INFORMATION
  Report Type: Spontaneous
  Country: US (occurrence: US)
  Receive Date: 20130826
  Receipt Date: 20140331
  Transmission Date: 20141002
  Serious: Yes (Hospitalization)
  Sender: FDA-Public Use
  Company Number: US-UCBSA-095799

PATIENT
  Age: 50 Year
  Sex: Male
  Weight: 81.64 kg

DRUGS (29)
  1. VIMPAT [Suspect]
     Indication: GRAND MAL CONVULSION
  2. VIMPAT [Suspect]
     Indication: CONVULSION
  3. VIMPAT [Suspect]
     Indication: GRAND MAL CONVULSION
     Dates: start: 2012, end: 2012
  4. VIMPAT [Suspect]
     Indication: CONVULSION
     Dates: start: 2012, end: 2012
  5. VIMPAT [Suspect]
     Indication: GRAND MAL CONVULSION
     Dates: start: 2012
  6. VIMPAT [Suspect]
     Indication: CONVULSION
     Dates: start: 2012
  7. VIMPAT [Suspect]
     Indication: GRAND MAL CONVULSION
     Route: 048
  8. VIMPAT [Suspect]
     Indication: CONVULSION
     Route: 048
  9. VIMPAT [Suspect]
     Indication: GRAND MAL CONVULSION
     Route: 048
     Dates: start: 201307, end: 201307
  10. VIMPAT [Suspect]
     Indication: CONVULSION
     Route: 048
     Dates: start: 201307, end: 201307
  11. VIMPAT [Suspect]
     Indication: GRAND MAL CONVULSION
     Route: 048
     Dates: start: 2013
  12. VIMPAT [Suspect]
     Indication: CONVULSION
     Route: 048
     Dates: start: 2013
  13. VIMPAT [Suspect]
     Indication: GRAND MAL CONVULSION
     Dosage: PER 2.5 DAYS
  14. VIMPAT [Suspect]
     Indication: CONVULSION
     Dosage: PER 2.5 DAYS
  15. VIMPAT [Suspect]
     Indication: GRAND MAL CONVULSION
     Dosage: 500 MG
  16. VIMPAT [Suspect]
     Indication: CONVULSION
     Dosage: 500 MG
  17. VIMPAT [Suspect]
     Indication: GRAND MAL CONVULSION
     Dosage: 400 MG
  18. VIMPAT [Suspect]
     Indication: CONVULSION
     Dosage: 400 MG
  19. CRESTOR [Concomitant]
     Indication: BLOOD CHOLESTEROL
     Route: 048
     Dates: start: 2012
  20. CLARINEX [Concomitant]
     Indication: HYPERSENSITIVITY
     Dosage: SINCE 1.5 YEARS
     Route: 048
  21. FLONASE [Concomitant]
     Indication: ASTHMA
     Route: 055
  22. COMBIVENT [Concomitant]
     Indication: ASTHMA
  23. NEXIUM [Concomitant]
     Indication: DYSPEPSIA
     Dosage: 40MG; EVERY MORNING
     Route: 048
  24. EXFORGE [Concomitant]
     Indication: HYPERTENSION
     Dosage: 10/160/25 MG
  25. EXFORGE [Concomitant]
     Indication: HYPERTENSION
     Dosage: 10/320/25MG EVERY NIGHT
  26. SERTRALINE [Concomitant]
     Indication: DEPRESSION
     Dosage: 100MG
     Dates: start: 2013
  27. FLOVENT [Concomitant]
     Indication: ASTHMA
     Dosage: 200MCG 2 PUFFS
  28. PROVENT [Concomitant]
     Indication: ASTHMA
     Dosage: 6.7G;  2 PUFFS
  29. NASONEX [Concomitant]
     Indication: HYPERSENSITIVITY
     Dosage: 50MCG; 1 SPRAY

REACTIONS (8)
  - Transient ischaemic attack [Recovered/Resolved]
  - Convulsion [Recovered/Resolved]
  - Dysarthria [Recovered/Resolved]
  - Diarrhoea [Recovered/Resolved]
  - Dizziness [Unknown]
  - Overdose [Unknown]
  - Headache [Recovered/Resolved]
  - Inappropriate schedule of drug administration [Unknown]
